FAERS Safety Report 8164551-9 (Version None)
Quarter: 2012Q1

REPORT INFORMATION
  Report Type: 
  Country: None (occurrence: None)
  Receive Date: 20120226
  Receipt Date: 20120213
  Transmission Date: 20120608
  Serious: Yes (Other)
  Sender: FDA-Public Use
  Company Number: US-BRISTOL-MYERS SQUIBB COMPANY-16397952

PATIENT
  Age: 43 Year
  Sex: Female

DRUGS (5)
  1. CYCLOPHOSPHAMIDE [Suspect]
     Indication: BREAST CANCER
  2. DEXAMETHASONE [Concomitant]
     Dosage: BOTH ORAL (8 MG TWICE DAILY ON DAY 0) AND IV (10MG)
  3. DOCETAXEL [Suspect]
     Indication: BREAST CANCER
  4. APREPITANT [Concomitant]
     Dosage: ON DAY 1 125MG; 80 MG ON DAYS 2 AND 3
  5. PALONOSETRON [Concomitant]
     Route: 042

REACTIONS (1)
  - RECALL PHENOMENON [None]
